FAERS Safety Report 13296644 (Version 1)
Quarter: 2017Q1

REPORT INFORMATION
  Report Type: Other
  Country: US (occurrence: US)
  Receive Date: 20170306
  Receipt Date: 20170306
  Transmission Date: 20170428
  Serious: Yes (Hospitalization, Other)
  Sender: FDA-Public Use
  Company Number: US-DEXPHARM-20170293

PATIENT
  Age: 18 Year
  Sex: Male
  Weight: 58 kg

DRUGS (3)
  1. ISOTRETINOIN [Interacting]
     Active Substance: ISOTRETINOIN
     Indication: ACNE
     Dosage: 40MG A DAY
  2. OMEPRAZOLE. [Suspect]
     Active Substance: OMEPRAZOLE
     Indication: GASTRITIS
  3. MARIJUANA [Interacting]
     Active Substance: CANNABIS SATIVA SUBSP. INDICA TOP

REACTIONS (1)
  - Drug interaction [Unknown]
